FAERS Safety Report 13337756 (Version 2)
Quarter: 2017Q1

REPORT INFORMATION
  Report Type: Spontaneous
  Country: US (occurrence: US)
  Receive Date: 20170315
  Receipt Date: 20170321
  Transmission Date: 20170428
  Serious: Yes (Hospitalization)
  Sender: FDA-Public Use
  Company Number: US-ASTELLAS-2017US009414

PATIENT
  Age: 79 Year
  Sex: Male

DRUGS (2)
  1. VESICARE [Suspect]
     Active Substance: SOLIFENACIN SUCCINATE
     Indication: POLLAKIURIA
     Route: 048
  2. VESICARE [Suspect]
     Active Substance: SOLIFENACIN SUCCINATE
     Indication: POLYURIA

REACTIONS (6)
  - Neurological symptom [Unknown]
  - Aggression [Unknown]
  - Disorientation [Unknown]
  - Movement disorder [Unknown]
  - Fall [Unknown]
  - Hallucination [Unknown]
